FAERS Safety Report 9086595 (Version 1)
Quarter: 2013Q1

REPORT INFORMATION
  Report Type: Report from Study
  Country: US (occurrence: US)
  Receive Date: 20130131
  Receipt Date: 20130131
  Transmission Date: 20140127
  Serious: No
  Sender: FDA-Public Use
  Company Number: US-ABBOTT-12P-163-0988810-00

PATIENT
  Age: 36 Year
  Sex: Female
  Weight: 52.21 kg

DRUGS (4)
  1. HUMIRA [Suspect]
     Indication: UVEITIS
     Dates: start: 20120923, end: 20120923
  2. HUMIRA [Suspect]
     Indication: VITRITIS
  3. HUMIRA [Suspect]
     Indication: AUTOIMMUNE DISORDER
  4. HUMIRA [Suspect]
     Indication: COLLAGEN DISORDER

REACTIONS (4)
  - Off label use [Not Recovered/Not Resolved]
  - Device malfunction [Unknown]
  - Drug dose omission [Unknown]
  - Headache [Recovered/Resolved]
